FAERS Safety Report 9373650 (Version 1)
Quarter: 2013Q2

REPORT INFORMATION
  Report Type: Other
  Country: FR (occurrence: FR)
  Receive Date: 20130627
  Receipt Date: 20130627
  Transmission Date: 20140414
  Serious: Yes (Hospitalization, Other)
  Sender: FDA-Public Use
  Company Number: FR-RB-2897-2006

PATIENT
  Age: 31 Year
  Sex: Male

DRUGS (4)
  1. SUBUTEX [Suspect]
     Indication: DRUG DEPENDENCE
     Route: 042
     Dates: start: 19980401, end: 19980415
  2. DEPAMIDE [Concomitant]
     Indication: EPILEPSY
     Route: 048
     Dates: start: 199501
  3. MEPROBAMATE [Concomitant]
     Indication: ALCOHOL ABUSE
     Route: 048
     Dates: start: 199501
  4. VALPROMIDE [Concomitant]
     Indication: PRODUCT USED FOR UNKNOWN INDICATION
     Route: 065

REACTIONS (5)
  - Jaundice [Unknown]
  - Asthenia [Unknown]
  - Intentional drug misuse [Recovered/Resolved]
  - Hepatic enzyme increased [Unknown]
  - Hepatitis C [Unknown]
